FAERS Safety Report 8997335 (Version 2)
Quarter: 2013Q1

REPORT INFORMATION
  Report Type: Spontaneous
  Country: US (occurrence: US)
  Receive Date: 20130104
  Receipt Date: 20130116
  Transmission Date: 20140127
  Serious: Yes (Other)
  Sender: FDA-Public Use
  Company Number: US-PFIZER INC-2013002863

PATIENT
  Age: 42 Year
  Sex: Female
  Weight: 61.22 kg

DRUGS (5)
  1. NEURONTIN [Suspect]
     Indication: NERVE INJURY
     Dosage: 600 MG, 4X/DAY
     Route: 048
     Dates: start: 1998
  2. NEURONTIN [Suspect]
     Indication: PAIN IN EXTREMITY
  3. NEURONTIN [Suspect]
     Indication: INTERVERTEBRAL DISC PROTRUSION
  4. CELEBREX [Suspect]
     Dosage: UNK
     Dates: start: 1998, end: 2000
  5. ARTHROTEC [Concomitant]
     Dosage: UNK

REACTIONS (4)
  - Back disorder [Unknown]
  - Abdominal discomfort [Unknown]
  - Local swelling [Unknown]
  - Activities of daily living impaired [Unknown]
